FAERS Safety Report 20646279 (Version 2)
Quarter: 2022Q1

REPORT INFORMATION
  Report Type: Spontaneous
  Country: CN (occurrence: CN)
  Receive Date: 20220329
  Receipt Date: 20220331
  Transmission Date: 20220424
  Serious: No
  Sender: FDA-Public Use
  Company Number: CN-UCBSA-2022018126

PATIENT

DRUGS (2)
  1. NEUPRO [Suspect]
     Active Substance: ROTIGOTINE
     Indication: Product used for unknown indication
     Dosage: 4MG UNK
  2. NEUPRO [Suspect]
     Active Substance: ROTIGOTINE
     Dosage: 6MG UNK
     Dates: start: 2022

REACTIONS (2)
  - Device adhesion issue [Unknown]
  - Drug ineffective [Unknown]

NARRATIVE: CASE EVENT DATE: 20220101
